FAERS Safety Report 6036371-2 (Version None)
Quarter: 2009Q1

REPORT INFORMATION
  Report Type: 
  Country: None (occurrence: None)
  Receive Date: 20090113
  Receipt Date: 20090107
  Transmission Date: 20090719
  Serious: Yes (Death)
  Sender: FDA-Public Use
  Company Number: GB-MERCK-0811GBR00060

PATIENT
  Sex: Male

DRUGS (3)
  1. ZOCOR [Suspect]
     Indication: POST PROCEDURAL STROKE
     Route: 048
     Dates: start: 20080901, end: 20080101
  2. CITALOPRAM [Concomitant]
     Indication: DEPRESSION
     Route: 065
  3. MIRTAZAPINE [Concomitant]
     Indication: DEPRESSION
     Route: 065

REACTIONS (2)
  - COMPLETED SUICIDE [None]
  - DEPRESSION [None]
